FAERS Safety Report 7656426-6 (Version None)
Quarter: 2011Q3

REPORT INFORMATION
  Report Type: 
  Country: None (occurrence: None)
  Receive Date: 20110804
  Receipt Date: 20110728
  Transmission Date: 20111222
  Serious: Yes (Hospitalization)
  Sender: FDA-Public Use
  Company Number: SE-GLAXOSMITHKLINE-B0736825A

PATIENT
  Sex: Female

DRUGS (2)
  1. LAPATINIB [Suspect]
     Indication: BREAST CANCER
     Dosage: 1250MG PER DAY
     Route: 048
     Dates: start: 20110413
  2. CAPECITABINE [Suspect]
     Indication: BREAST CANCER
     Dosage: 1800MG TWICE PER DAY
     Route: 048
     Dates: start: 20110413

REACTIONS (1)
  - URTICARIA [None]
